FAERS Safety Report 5967534-X (Version None)
Quarter: 2008Q4

REPORT INFORMATION
  Report Type: 
  Country: None (occurrence: None)
  Receive Date: 20081125
  Receipt Date: 20081117
  Transmission Date: 20090506
  Serious: Yes (Hospitalization)
  Sender: FDA-Public Use
  Company Number: CH-PFIZER INC-2008097266

PATIENT
  Age: 80 Year
  Sex: Female

DRUGS (10)
  1. ALDACTONE [Suspect]
     Route: 048
     Dates: end: 20081013
  2. METOLAZONE [Suspect]
     Route: 048
     Dates: start: 20080901, end: 20081013
  3. TOREM [Suspect]
     Route: 048
  4. COVERSUM [Concomitant]
  5. DILATREND [Concomitant]
     Route: 048
  6. CALCORT [Concomitant]
     Route: 048
  7. ZURCAL [Concomitant]
     Route: 048
  8. SPIRIVA [Concomitant]
  9. PULMICORT-100 [Concomitant]
  10. LANTUS [Concomitant]

REACTIONS (2)
  - ASTHENIA [None]
  - HYPONATRAEMIA [None]
